FAERS Safety Report 6839678-1 (Version None)
Quarter: 2010Q3

REPORT INFORMATION
  Report Type: 
  Country: None (occurrence: None)
  Receive Date: 20100714
  Receipt Date: 20100709
  Transmission Date: 20110219
  Serious: Yes (Other)
  Sender: FDA-Public Use
  Company Number: DE-BRISTOL-MYERS SQUIBB COMPANY-15148372

PATIENT
  Age: 49 Year
  Sex: Female
  Weight: 60 kg

DRUGS (5)
  1. ABILIFY [Suspect]
     Indication: DEPRESSION
     Route: 048
     Dates: start: 20100518, end: 20100601
  2. QUILONUM [Interacting]
     Indication: DEPRESSION
     Dosage: QUILONUM RETARD TAKEN BEFORE 06APR2010
     Route: 048
  3. CIPRALEX [Interacting]
     Indication: DEPRESSION
     Dosage: TAKEN BEFORE 06APR2010
     Route: 048
  4. LITHIUM [Concomitant]
  5. ESCITALOPRAM [Concomitant]

REACTIONS (2)
  - DRUG INTERACTION [None]
  - GENERALISED OEDEMA [None]
